FAERS Safety Report 24792907 (Version 2)
Quarter: 2025Q1

REPORT INFORMATION
  Report Type: Spontaneous
  Country: US (occurrence: US)
  Receive Date: 20241231
  Receipt Date: 20250227
  Transmission Date: 20250409
  Serious: No
  Sender: BAXTER
  Company Number: US-BAXTER-2024BAX029954

PATIENT

DRUGS (2)
  1. DEXMEDETOMIDINE HYDROCHLORIDE [Suspect]
     Active Substance: DEXMEDETOMIDINE HYDROCHLORIDE
     Route: 065
  2. DEXMEDETOMIDINE HYDROCHLORIDE [Suspect]
     Active Substance: DEXMEDETOMIDINE HYDROCHLORIDE
     Route: 065

REACTIONS (1)
  - No adverse event [Unknown]
